FAERS Safety Report 7433245-7 (Version None)
Quarter: 2011Q2

REPORT INFORMATION
  Report Type: 
  Country: None (occurrence: None)
  Receive Date: 20110422
  Receipt Date: 20110419
  Transmission Date: 20111010
  Serious: Yes (Other)
  Sender: FDA-Public Use
  Company Number: CHPA2011NL05733

PATIENT
  Sex: Male

DRUGS (2)
  1. OTRIVIN [Suspect]
     Dosage: UNK, UNK ^SINCE SEVERAL YEARS^
     Route: 045
  2. OTRIVIN [Suspect]
     Indication: NASOPHARYNGITIS
     Dosage: 1 DF, UNK
     Route: 045
     Dates: start: 20110328

REACTIONS (1)
  - RETINAL ARTERY OCCLUSION [None]
